FAERS Safety Report 19872878 (Version 1)
Quarter: 2021Q3

REPORT INFORMATION
  Report Type: Spontaneous
  Country: US (occurrence: US)
  Receive Date: 20210922
  Receipt Date: 20210922
  Transmission Date: 20211014
  Serious: Yes (Hospitalization)
  Sender: FDA-Public Use
  Company Number: US-DSJP-DSU-2021-130617

PATIENT
  Sex: Male

DRUGS (1)
  1. ENHERTU [Suspect]
     Active Substance: FAM-TRASTUZUMAB DERUXTECAN-NXKI
     Indication: COLORECTAL CANCER
     Dosage: UNK
     Route: 065
     Dates: start: 202109

REACTIONS (7)
  - Off label use [Unknown]
  - Laboratory test abnormal [Unknown]
  - Blood potassium decreased [Unknown]
  - Dehydration [Unknown]
  - Blood creatinine increased [Unknown]
  - Hospitalisation [Recovered/Resolved]
  - Diarrhoea [Unknown]

NARRATIVE: CASE EVENT DATE: 202109
